FAERS Safety Report 23808429 (Version 1)
Quarter: 2024Q2

REPORT INFORMATION
  Report Type: Spontaneous
  Country: US (occurrence: None)
  Receive Date: 20240501
  Receipt Date: 20240501
  Transmission Date: 20240716
  Serious: Yes (Hospitalization)
  Sender: FDA-Public Use
  Company Number: None

PATIENT
  Age: 52 Year
  Sex: Female

DRUGS (1)
  1. GAMUNEX-C [Suspect]
     Active Substance: HUMAN IMMUNOGLOBULIN G
     Indication: Multiple sclerosis
     Dosage: OTHER QUANTITY : 1 GM/KG;?FREQUENCY : EVERY OTHER WEEK;?
     Route: 058

REACTIONS (3)
  - Illness [None]
  - Therapy interrupted [None]
  - Infusion related reaction [None]

NARRATIVE: CASE EVENT DATE: 20230830
